FAERS Safety Report 8430995-0 (Version None)
Quarter: 2012Q2

REPORT INFORMATION
  Report Type: 
  Country: None (occurrence: None)
  Receive Date: 20120612
  Receipt Date: 20120530
  Transmission Date: 20120825
  Serious: Yes (Hospitalization)
  Sender: FDA-Public Use
  Company Number: US-MYLANLABS-2012S1011366

PATIENT
  Age: 86 Year
  Sex: Female

DRUGS (2)
  1. CARBAMAZEPINE [Suspect]
     Dosage: 100MG DAILY
  2. HYDRALAZINE HYDROCHLORIDE [Suspect]
     Indication: HYPERTENSION

REACTIONS (2)
  - RENAL FAILURE ACUTE [None]
  - ACUTE FEBRILE NEUTROPHILIC DERMATOSIS [None]
